FAERS Safety Report 10181872 (Version 1)
Quarter: 2014Q2

REPORT INFORMATION
  Report Type: Spontaneous
  Country: US (occurrence: US)
  Receive Date: 20140519
  Receipt Date: 20140519
  Transmission Date: 20141212
  Serious: No
  Sender: FDA-Public Use
  Company Number: US-ASTRAZENECA-2013SE78186

PATIENT
  Age: 67 Year
  Sex: Female
  Weight: 70.3 kg

DRUGS (4)
  1. ATACAND [Suspect]
     Indication: BLOOD PRESSURE ABNORMAL
     Route: 048
     Dates: start: 201302, end: 2013
  2. ATACAND [Suspect]
     Indication: BLOOD PRESSURE ABNORMAL
     Dosage: GENERIC
     Route: 048
     Dates: start: 2013
  3. ATACAND HCT [Suspect]
     Indication: BLOOD PRESSURE ABNORMAL
     Route: 048
     Dates: start: 201109, end: 201302
  4. ATACAND HCT [Suspect]
     Indication: BLOOD PRESSURE ABNORMAL
     Dosage: GENERIC
     Route: 048
     Dates: start: 201302, end: 201302

REACTIONS (14)
  - Adverse event [Unknown]
  - Abdominal discomfort [Unknown]
  - Oral herpes [Unknown]
  - Paraesthesia oral [Unknown]
  - Dysuria [Unknown]
  - Arthralgia [Unknown]
  - Urine output increased [Unknown]
  - Palpitations [Unknown]
  - Limb discomfort [Unknown]
  - Nasal congestion [Unknown]
  - Cough [Unknown]
  - Lip swelling [Unknown]
  - Intentional product misuse [Unknown]
  - Drug dose omission [Unknown]
